FAERS Safety Report 25660616 (Version 1)
Quarter: 2025Q3

REPORT INFORMATION
  Report Type: Spontaneous
  Country: US (occurrence: None)
  Receive Date: 20250807
  Receipt Date: 20250807
  Transmission Date: 20251021
  Serious: No
  Sender: FDA-CTU
  Company Number: None

PATIENT
  Age: 61 Year
  Sex: Male
  Weight: 109.32 kg

DRUGS (7)
  1. COBENFY [Suspect]
     Active Substance: TROSPIUM CHLORIDE\XANOMELINE
     Indication: Schizophrenia
  2. HALDOL [Concomitant]
     Active Substance: HALOPERIDOL
  3. MAGNESIUM [Concomitant]
     Active Substance: MAGNESIUM
  4. VITA B COMPLEX [Concomitant]
  5. ZINC [Concomitant]
     Active Substance: ZINC
  6. CALCIUM [Concomitant]
     Active Substance: CALCIUM
  7. FISH OIL [Concomitant]
     Active Substance: FISH OIL

REACTIONS (5)
  - Anger [None]
  - Aggression [None]
  - Anger [None]
  - Thinking abnormal [None]
  - Abnormal behaviour [None]
